FAERS Safety Report 6303784-0 (Version None)
Quarter: 2009Q3

REPORT INFORMATION
  Report Type: 
  Country: None (occurrence: None)
  Receive Date: 20090805
  Receipt Date: 20090724
  Transmission Date: 20100115
  Serious: Yes (Other)
  Sender: FDA-Public Use
  Company Number: 2009AP003049

PATIENT
  Age: 26 Year
  Sex: Male

DRUGS (6)
  1. RISPERIDONE [Suspect]
     Indication: SCHIZOPHRENIA
     Dosage: 8 MG;PO
     Route: 048
     Dates: start: 20070101, end: 20090121
  2. RISPERIDONE [Suspect]
     Indication: SCHIZOPHRENIA
     Dosage: 8 MG;PO
     Route: 048
     Dates: start: 20070101
  3. RISPERIDONE [Suspect]
     Indication: SCHIZOPHRENIA
     Dosage: 8 MG;PO
     Route: 048
     Dates: start: 20090325
  4. CHLORPROMAZINE [Concomitant]
  5. CITALOPRAM HYDROBROMIDE [Concomitant]
  6. QUETIAPINE FUMARATE [Concomitant]

REACTIONS (2)
  - NEUTROPENIA [None]
  - WHITE BLOOD CELL COUNT DECREASED [None]
